FAERS Safety Report 5683093-3 (Version None)
Quarter: 2008Q1

REPORT INFORMATION
  Report Type: 
  Country: None (occurrence: None)
  Receive Date: 20080327
  Receipt Date: 20080301
  Transmission Date: 20080703
  Serious: Yes (Disabling)
  Sender: FDA-Public Use
  Company Number: TR-ELI_LILLY_AND_COMPANY-TR200803005151

PATIENT
  Age: 72 Year
  Sex: Female
  Weight: 95 kg

DRUGS (8)
  1. HUMULIN N [Suspect]
     Dosage: 10 IU, EACH EVENING
     Route: 058
     Dates: start: 19990101
  2. HUMULIN R [Suspect]
     Indication: DIABETES MELLITUS
     Dosage: 12 IU, 3/D
     Route: 058
     Dates: start: 19990101
  3. METFORMIN HYDROCHLORIDE [Concomitant]
     Indication: DIABETES MELLITUS
     Dosage: UNK, DAILY (1/D)
     Dates: start: 19980101
  4. AMLODIPINE [Concomitant]
     Dosage: UNK, DAILY (1/D)
     Dates: start: 19980101
  5. LISINOPRIL HYDROCHLORTHIAZID [Concomitant]
     Indication: HYPERTENSION
     Dosage: UNK, DAILY (1/D)
     Dates: start: 19980101
  6. ACETYLSALICYLIC ACID SRT [Concomitant]
     Dosage: UNK, 2/D
     Dates: start: 19980101
  7. DAFLON [Concomitant]
     Dosage: UNK, 2/D
     Dates: start: 20070101
  8. HESPERIDIN [Concomitant]
     Dosage: UNK, 2/D

REACTIONS (2)
  - BLINDNESS [None]
  - CATARACT [None]
